FAERS Safety Report 6245175-7 (Version None)
Quarter: 2009Q2

REPORT INFORMATION
  Report Type: 
  Country: None (occurrence: None)
  Receive Date: 20090623
  Receipt Date: 20090623
  Transmission Date: 20091009
  Serious: No
  Sender: FDA-Public Use
  Company Number: None

PATIENT
  Age: 68 Year
  Sex: Female
  Weight: 97.5234 kg

DRUGS (3)
  1. IPRATROPIUM BROMIDE NASAL .06% APOTEX CORP. [Suspect]
     Indication: EAR DISCOMFORT
     Dosage: 2 SPRAYS 3 X DAILY X 10 DAY NASAL
     Route: 045
     Dates: start: 20090414, end: 20090418
  2. IPRATROPIUM BROMIDE NASAL .06% APOTEX CORP. [Suspect]
     Indication: EUSTACHIAN TUBE DISORDER
     Dosage: 2 SPRAYS 3 X DAILY X 10 DAY NASAL
     Route: 045
     Dates: start: 20090414, end: 20090418
  3. IPRATROPIUM BROMIDE NASAL .06% APOTEX CORP. [Suspect]
     Indication: SWELLING
     Dosage: 2 SPRAYS 3 X DAILY X 10 DAY NASAL
     Route: 045
     Dates: start: 20090414, end: 20090418

REACTIONS (1)
  - TINNITUS [None]
